FAERS Safety Report 17165588 (Version 3)
Quarter: 2020Q1

REPORT INFORMATION
  Report Type: Spontaneous
  Country: CN (occurrence: CN)
  Receive Date: 20191217
  Receipt Date: 20200103
  Transmission Date: 20200409
  Serious: Yes (Death, Life-Threatening, Other)
  Sender: FDA-Public Use
  Company Number: CN-ASTRAZENECA-2019SF82228

PATIENT
  Age: 78 Year
  Sex: Male

DRUGS (6)
  1. BRICANYL [Suspect]
     Active Substance: TERBUTALINE SULFATE
     Indication: CHRONIC OBSTRUCTIVE PULMONARY DISEASE
     Route: 065
  2. BISOPROLOL FUMARATE. [Concomitant]
     Active Substance: BISOPROLOL FUMARATE
     Route: 065
     Dates: start: 20191122, end: 20191123
  3. PULMICORT RESPULES [Suspect]
     Active Substance: BUDESONIDE
     Indication: CHRONIC OBSTRUCTIVE PULMONARY DISEASE
     Dosage: ONE PIECE, TWO TIMES A DAY
     Route: 055
     Dates: start: 201911
  4. AMBROXOL [Concomitant]
     Active Substance: AMBROXOL
     Indication: PRODUCTIVE COUGH
     Dates: start: 20191119, end: 20191123
  5. PULMICORT RESPULES [Suspect]
     Active Substance: BUDESONIDE
     Indication: RESPIRATORY FAILURE
     Dosage: ONE PIECE, TWO TIMES A DAY
     Route: 055
     Dates: start: 201911
  6. BRICANYL [Suspect]
     Active Substance: TERBUTALINE SULFATE
     Indication: RESPIRATORY FAILURE
     Route: 065

REACTIONS (17)
  - Heart rate increased [Unknown]
  - Death [Fatal]
  - Heart rate decreased [Fatal]
  - Dyspnoea [Unknown]
  - Blood pressure increased [Unknown]
  - Asthma [Unknown]
  - Altered state of consciousness [Unknown]
  - Discomfort [Unknown]
  - Carbon dioxide abnormal [Unknown]
  - Cough [Unknown]
  - Rales [Unknown]
  - Cyanosis [Unknown]
  - Chest discomfort [Unknown]
  - Mental disorder [Unknown]
  - Blood pressure decreased [Fatal]
  - Hypoxia [Unknown]
  - Lung disorder [Unknown]
